FAERS Safety Report 10081768 (Version 1)
Quarter: 2014Q2

REPORT INFORMATION
  Report Type: Spontaneous
  Country: CN (occurrence: CN)
  Receive Date: 20140416
  Receipt Date: 20140416
  Transmission Date: 20141212
  Serious: Yes (Other)
  Sender: FDA-Public Use
  Company Number: CN-009507513-1404CHN007747

PATIENT
  Age: 94 Year
  Sex: Male
  Weight: 65 kg

DRUGS (1)
  1. TIENAM [Suspect]
     Indication: LUNG INFECTION
     Dosage: 0.5 G, TID
     Route: 042
     Dates: start: 20130309, end: 20130310

REACTIONS (1)
  - Muscle spasms [Recovered/Resolved]
